FAERS Safety Report 6317144-X (Version None)
Quarter: 2009Q3

REPORT INFORMATION
  Report Type: 
  Country: None (occurrence: None)
  Receive Date: 20090819
  Receipt Date: 20090804
  Transmission Date: 20100115
  Serious: Yes (Hospitalization)
  Sender: FDA-Public Use
  Company Number: US-DEXPHARM-20091165

PATIENT
  Age: 84 Year
  Sex: Female

DRUGS (1)
  1. OMEPRAZOLE DELAYED RELEASE TABLETS [Suspect]
     Indication: GASTRIC ULCER
     Dosage: 20 MG ONCE A DAY, ORAL
     Route: 048
     Dates: end: 20080904

REACTIONS (3)
  - COLON CANCER [None]
  - FLATULENCE [None]
  - INTENTIONAL DRUG MISUSE [None]
